FAERS Safety Report 8207498-1 (Version None)
Quarter: 2012Q1

REPORT INFORMATION
  Report Type: 
  Country: None (occurrence: None)
  Receive Date: 20120313
  Receipt Date: 20120313
  Transmission Date: 20120608
  Serious: No
  Sender: FDA-Public Use
  Company Number: None

PATIENT
  Sex: Female

DRUGS (1)
  1. ZONISAMIDE [Suspect]
     Indication: MIGRAINE PROPHYLAXIS
     Dosage: 100MG DAILY PO  (ONE DOSE)
     Route: 048
     Dates: start: 20120309

REACTIONS (2)
  - PSYCHOTIC DISORDER [None]
  - FEELING HOT [None]
